FAERS Safety Report 23310419 (Version 1)
Quarter: 2023Q4

REPORT INFORMATION
  Report Type: Spontaneous
  Country: FR (occurrence: FR)
  Receive Date: 20231218
  Receipt Date: 20231218
  Transmission Date: 20240110
  Serious: Yes (Other)
  Sender: FDA-Public Use
  Company Number: None

PATIENT
  Age: 78 Year
  Sex: Male

DRUGS (6)
  1. ATORVASTATIN [Suspect]
     Active Substance: ATORVASTATIN
     Indication: Dyslipidaemia
     Dosage: 80 MILLIGRAM, QD
     Route: 048
     Dates: start: 20231105
  2. BISOPROLOL [Suspect]
     Active Substance: BISOPROLOL\BISOPROLOL FUMARATE
     Indication: Hypertension
     Dosage: 2.5 MILLIGRAM, QD
     Route: 048
     Dates: start: 20231105
  3. RAMIPRIL [Suspect]
     Active Substance: RAMIPRIL
     Indication: Hypertension
     Dosage: 2.5 MILLIGRAM, QD
     Route: 048
     Dates: start: 20231105
  4. PANTOPRAZOLE [Suspect]
     Active Substance: PANTOPRAZOLE
     Indication: Prophylaxis against gastrointestinal ulcer
     Dosage: 20 MILLIGRAM, QD
     Route: 048
     Dates: end: 20231105
  5. TICAGRELOR [Suspect]
     Active Substance: TICAGRELOR
     Indication: Disease risk factor
     Dosage: 90 MILLIGRAM, BID, 1 TAB IN MORN, 1 IN EVENING
     Route: 048
     Dates: start: 20231105
  6. KARDEGIC [Suspect]
     Active Substance: ASPIRIN DL-LYSINE
     Indication: Disease risk factor
     Dosage: 75 MILLIGRAM, QD
     Route: 048
     Dates: start: 20231105

REACTIONS (2)
  - Cholestasis [Recovering/Resolving]
  - Cell death [Recovered/Resolved]

NARRATIVE: CASE EVENT DATE: 20231108
